FAERS Safety Report 12355479 (Version 4)
Quarter: 2016Q3

REPORT INFORMATION
  Report Type: Spontaneous
  Country: FI (occurrence: FI)
  Receive Date: 20160511
  Receipt Date: 20160718
  Transmission Date: 20161109
  Serious: Yes (Hospitalization)
  Sender: FDA-Public Use
  Company Number: FI-PFIZER INC-2016241128

PATIENT
  Sex: Male
  Weight: 3.97 kg

DRUGS (5)
  1. CYTOTEC [Suspect]
     Active Substance: MISOPROSTOL
     Dosage: 100 UG, 2X/DAY
     Route: 064
     Dates: start: 20160228, end: 20160228
  2. OXANEST [Concomitant]
     Active Substance: OXYCODONE HYDROCHLORIDE
     Indication: LABOUR PAIN
     Dosage: 10 MG, 2X/DAY
     Route: 064
     Dates: start: 20160229, end: 20160229
  3. SYNTOCINON ORIFARM [Concomitant]
     Indication: INDUCED LABOUR
     Dosage: 12-60 ML/H
     Route: 064
     Dates: start: 20160226, end: 20160226
  4. CYTOTEC [Suspect]
     Active Substance: MISOPROSTOL
     Indication: INDUCED LABOUR
     Dosage: 50 UG, 2X/DAY
     Route: 064
     Dates: start: 20160227, end: 20160227
  5. CYTOTEC [Suspect]
     Active Substance: MISOPROSTOL
     Dosage: 50 UG, 2X/DAY
     Route: 064
     Dates: start: 20160229, end: 20160229

REACTIONS (5)
  - Psychomotor skills impaired [Unknown]
  - Neonatal asphyxia [Unknown]
  - Foetal exposure during pregnancy [Unknown]
  - Foetal heart rate disorder [Recovered/Resolved]
  - Convulsion neonatal [Unknown]

NARRATIVE: CASE EVENT DATE: 201602
